FAERS Safety Report 8815081 (Version 2)
Quarter: 2012Q4

REPORT INFORMATION
  Report Type: Report from Study
  Country: US (occurrence: US)
  Receive Date: 20120928
  Receipt Date: 20121107
  Transmission Date: 20130627
  Serious: Yes (Hospitalization, Other)
  Sender: FDA-Public Use
  Company Number: US-ABBOTT-12P-163-0985690-00

PATIENT
  Sex: Female
  Weight: 95.34 kg

DRUGS (2)
  1. HUMIRA PRE-FILLED SYRINGE [Suspect]
     Indication: ANKYLOSING SPONDYLITIS
     Dates: start: 201002
  2. PREDNISONE [Concomitant]
     Indication: ANKYLOSING SPONDYLITIS
     Dates: start: 2010

REACTIONS (17)
  - Functional gastrointestinal disorder [Recovered/Resolved]
  - Fall [Recovered/Resolved]
  - Skin disorder [Recovered/Resolved]
  - Abdominal hernia [Recovered/Resolved]
  - Gastrointestinal necrosis [Recovered/Resolved]
  - Peripheral embolism [Recovered/Resolved]
  - Sinusitis [Recovered/Resolved]
  - Pain [Recovered/Resolved]
  - Fatigue [Not Recovered/Not Resolved]
  - Drug ineffective [Not Recovered/Not Resolved]
  - Fistula [Unknown]
  - Gastrointestinal anastomotic leak [Unknown]
  - General physical health deterioration [Unknown]
  - Colitis ulcerative [Unknown]
  - Asthenia [Unknown]
  - Back pain [Unknown]
  - Spondyloarthropathy [Unknown]
